FAERS Safety Report 5511996-9 (Version None)
Quarter: 2007Q4

REPORT INFORMATION
  Report Type: 
  Country: None (occurrence: None)
  Receive Date: 20071109
  Receipt Date: 20071030
  Transmission Date: 20080405
  Serious: Yes (Other)
  Sender: FDA-Public Use
  Company Number: ES-MERCK-0710ESP00043

PATIENT
  Age: 40 Year
  Sex: Female

DRUGS (7)
  1. SINGULAIR [Suspect]
     Indication: ASTHMA
     Route: 048
     Dates: start: 20000401, end: 20000101
  2. SINGULAIR [Suspect]
     Route: 048
     Dates: start: 20060101, end: 20060101
  3. SINGULAIR [Suspect]
     Route: 065
     Dates: start: 20030101, end: 20030101
  4. SINGULAIR [Suspect]
     Indication: NASAL POLYPS
     Route: 048
     Dates: start: 20000401, end: 20000101
  5. SINGULAIR [Suspect]
     Route: 048
     Dates: start: 20060101, end: 20060101
  6. SINGULAIR [Suspect]
     Route: 065
     Dates: start: 20030101, end: 20030101
  7. ALBUTEROL SULFATE [Concomitant]
     Route: 065

REACTIONS (2)
  - OFF LABEL USE [None]
  - PULMONARY EOSINOPHILIA [None]
